FAERS Safety Report 15577473 (Version 1)
Quarter: 2018Q4

REPORT INFORMATION
  Report Type: Spontaneous
  Country: AT (occurrence: AT)
  Receive Date: 20181102
  Receipt Date: 20181102
  Transmission Date: 20190205
  Serious: Yes (Hospitalization)
  Sender: FDA-Public Use
  Company Number: AT-ALK-ABELLO A/S-2018AA001680

PATIENT

DRUGS (1)
  1. GRAZAX [Suspect]
     Active Substance: PHLEUM PRATENSE POLLEN
     Indication: PRODUCT USED FOR UNKNOWN INDICATION
     Dosage: 75000 SQ-T
     Dates: start: 201611

REACTIONS (5)
  - Crohn^s disease [Unknown]
  - Large intestine polyp [Recovered/Resolved]
  - Enterocolitis infectious [Unknown]
  - Abdominal pain [Not Recovered/Not Resolved]
  - Faecal calprotectin increased [Recovering/Resolving]

NARRATIVE: CASE EVENT DATE: 2018
